FAERS Safety Report 8829155 (Version 1)
Quarter: 2012Q4

REPORT INFORMATION
  Report Type: Spontaneous
  Country: US (occurrence: None)
  Receive Date: 20121005
  Receipt Date: 20121005
  Transmission Date: 20130627
  Serious: Yes (Disabling, Other)
  Sender: FDA-Public Use
  Company Number: None

PATIENT
  Age: 89 Year
  Sex: Female
  Weight: 63.5 kg

DRUGS (1)
  1. LEVOFLOXACIN [Suspect]
     Indication: ESCHERICHIA COLI BACTEREMIA
     Dosage: June 12 + 13 + 19 + 20
     Route: 048

REACTIONS (3)
  - Gastrointestinal pain [None]
  - Tendon pain [None]
  - Weight bearing difficulty [None]
